FAERS Safety Report 10064790 (Version 2)
Quarter: 2014Q2

REPORT INFORMATION
  Report Type: Report from Study
  Country: US (occurrence: US)
  Receive Date: 20140408
  Receipt Date: 20140408
  Transmission Date: 20141212
  Serious: Yes (Hospitalization)
  Sender: FDA-Public Use
  Company Number: US-SANOFI-AVENTIS-2012SA043779

PATIENT
  Age: 51 Year
  Sex: Female
  Weight: 85.2 kg

DRUGS (14)
  1. TERIFLUNOMIDE [Suspect]
     Indication: MULTIPLE SCLEROSIS RELAPSE
     Route: 048
     Dates: start: 20120112
  2. LISINOPRIL [Concomitant]
  3. ORAJEL ^DEL^ [Concomitant]
  4. CARISOPRODOL [Concomitant]
  5. PRILOSEC [Concomitant]
  6. NAPROXEN [Concomitant]
  7. XANAX [Concomitant]
  8. NORCO [Concomitant]
  9. GLYBURIDE [Concomitant]
  10. GABAPENTIN [Concomitant]
  11. LIDOCAINE [Concomitant]
  12. VITAMIN D [Concomitant]
  13. ASPIRIN [Concomitant]
  14. PULMICORT [Concomitant]

REACTIONS (2)
  - Haemoptysis [Recovered/Resolved]
  - Pneumonia [Recovered/Resolved]
